FAERS Safety Report 6019603-6 (Version None)
Quarter: 2008Q4

REPORT INFORMATION
  Report Type: 
  Country: None (occurrence: None)
  Receive Date: 20081224
  Receipt Date: 20081222
  Transmission Date: 20090506
  Serious: Yes (Life-Threatening, Other)
  Sender: FDA-Public Use
  Company Number: PHHY2008BR32992

PATIENT
  Age: 28 Year
  Sex: Female

DRUGS (1)
  1. TEGRETOL [Suspect]
     Dosage: 4000 MG (20 TABLETS)
     Route: 048
     Dates: start: 20081221, end: 20081222

REACTIONS (4)
  - AGITATION [None]
  - INTENTIONAL OVERDOSE [None]
  - SOMNOLENCE [None]
  - SUICIDE ATTEMPT [None]
